FAERS Safety Report 24701027 (Version 1)
Quarter: 2024Q4

REPORT INFORMATION
  Report Type: Spontaneous
  Country: US (occurrence: US)
  Receive Date: 20241205
  Receipt Date: 20241205
  Transmission Date: 20250115
  Serious: No
  Sender: Kenvue
  Company Number: US-KENVUE-20241102036

PATIENT
  Sex: Female

DRUGS (1)
  1. MENS ROGAINE EXTRA STRENGTH [Suspect]
     Active Substance: MINOXIDIL
     Indication: Alopecia
     Dosage: A SMALL AREA IN THE FRONT , TWICE A DAY
     Route: 061
     Dates: start: 202410

REACTIONS (3)
  - Hair texture abnormal [Not Recovered/Not Resolved]
  - Product residue present [Unknown]
  - Off label use [Unknown]

NARRATIVE: CASE EVENT DATE: 20241001
